FAERS Safety Report 5312051-3 (Version None)
Quarter: 2007Q2

REPORT INFORMATION
  Report Type: 
  Country: None (occurrence: None)
  Receive Date: 20070430
  Receipt Date: 20070418
  Transmission Date: 20071010
  Serious: Yes (Hospitalization, Disabling, Other)
  Sender: FDA-Public Use
  Company Number: US-ROCHE-439267

PATIENT
  Age: 14 Year
  Sex: Male

DRUGS (1)
  1. LARIAM [Suspect]
     Indication: MALARIA PROPHYLAXIS
     Route: 065
     Dates: start: 20040807, end: 20040911

REACTIONS (9)
  - ANXIETY DISORDER [None]
  - COGNITIVE DISORDER [None]
  - DEPRESSION [None]
  - ENCEPHALOPATHY [None]
  - MENTAL DISORDER [None]
  - PANIC ATTACK [None]
  - PSYCHOTIC DISORDER [None]
  - SPEECH DISORDER [None]
  - SUICIDAL IDEATION [None]
